FAERS Safety Report 7133824-0 (Version None)
Quarter: 2010Q4

REPORT INFORMATION
  Report Type: 
  Country: None (occurrence: None)
  Receive Date: 20101203
  Receipt Date: 20101123
  Transmission Date: 20110411
  Serious: No
  Sender: FDA-Public Use
  Company Number: US-BIOGENIDEC-2010BI041815

PATIENT
  Sex: Female

DRUGS (1)
  1. TYSABRI [Suspect]
     Indication: MULTIPLE SCLEROSIS
     Route: 042
     Dates: start: 20091107, end: 20091107

REACTIONS (4)
  - BALANCE DISORDER [None]
  - INSOMNIA [None]
  - MULTIPLE SCLEROSIS [None]
  - NECK PAIN [None]
